FAERS Safety Report 10025394 (Version 3)
Quarter: 2019Q4

REPORT INFORMATION
  Report Type: Spontaneous
  Country: US (occurrence: US)
  Receive Date: 20140320
  Receipt Date: 20191016
  Transmission Date: 20200122
  Serious: No
  Sender: FDA-Public Use
  Company Number: US-PFIZER INC-2014072935

PATIENT
  Age: 42 Year
  Sex: Female

DRUGS (4)
  1. GEODON [Suspect]
     Active Substance: ZIPRASIDONE HYDROCHLORIDE\ZIPRASIDONE MESYLATE
     Dosage: 40 MG, UNK
     Route: 048
     Dates: start: 20060301
  2. GEODON [Suspect]
     Active Substance: ZIPRASIDONE HYDROCHLORIDE\ZIPRASIDONE MESYLATE
     Dosage: 40 MG, DAILY
     Route: 048
     Dates: start: 20071130
  3. GEODON [Suspect]
     Active Substance: ZIPRASIDONE HYDROCHLORIDE\ZIPRASIDONE MESYLATE
     Dosage: 40 MG, 1X/DAY
     Route: 048
     Dates: start: 20081017, end: 20081106
  4. GEODON [Suspect]
     Active Substance: ZIPRASIDONE HYDROCHLORIDE\ZIPRASIDONE MESYLATE
     Dosage: 20 MG, 2X/DAY
     Route: 048
     Dates: start: 20020104

REACTIONS (11)
  - Gastric disorder [Unknown]
  - Irritable bowel syndrome [Unknown]
  - Toothache [Unknown]
  - Abdominal discomfort [Unknown]
  - Pain [Unknown]
  - Respiratory disorder [Unknown]
  - Gastrooesophageal reflux disease [Unknown]
  - Insomnia [Unknown]
  - Constipation [Unknown]
  - Nausea [Not Recovered/Not Resolved]
  - Infertility female [Unknown]

NARRATIVE: CASE EVENT DATE: 2005
